FAERS Safety Report 9316170 (Version 1)
Quarter: 2013Q2

REPORT INFORMATION
  Report Type: Spontaneous
  Country: US (occurrence: US)
  Receive Date: 20130530
  Receipt Date: 20130530
  Transmission Date: 20140414
  Serious: Yes (Other)
  Sender: FDA-Public Use
  Company Number: US-PFIZER INC-2013163437

PATIENT
  Age: 37 Year
  Sex: Female
  Weight: 51.25 kg

DRUGS (3)
  1. NEURONTIN [Suspect]
     Dosage: UNK
  2. ARTHROTEC [Suspect]
     Dosage: UNK
  3. HYDROCODONE [Concomitant]
     Dosage: UNK

REACTIONS (2)
  - Road traffic accident [Unknown]
  - Arthralgia [Unknown]
